FAERS Safety Report 12598517 (Version 1)
Quarter: 2016Q3

REPORT INFORMATION
  Report Type: Spontaneous
  Country: US (occurrence: US)
  Receive Date: 20160727
  Receipt Date: 20160727
  Transmission Date: 20161109
  Serious: No
  Sender: FDA-Public Use
  Company Number: US-BAUSCH-BL-2015-012751

PATIENT
  Age: 68 Year
  Sex: Male

DRUGS (1)
  1. ISTALOL [Suspect]
     Active Substance: TIMOLOL MALEATE
     Indication: GLAUCOMA
     Dosage: ONE DROP IN EACH EYE
     Route: 047

REACTIONS (2)
  - Headache [Recovered/Resolved]
  - Nausea [Recovered/Resolved]
